FAERS Safety Report 7644263-8 (Version None)
Quarter: 2011Q3

REPORT INFORMATION
  Report Type: 
  Country: None (occurrence: None)
  Receive Date: 20110729
  Receipt Date: 20110726
  Transmission Date: 20111222
  Serious: Yes (Death, Hospitalization, Other)
  Sender: FDA-Public Use
  Company Number: PHHY2011BR67418

PATIENT
  Sex: Female

DRUGS (2)
  1. EXELON [Suspect]
     Indication: DEMENTIA ALZHEIMER'S TYPE
     Dosage: 2 DF, DAILY
     Route: 048
  2. METFORMIN HCL [Concomitant]
     Indication: BLOOD GLUCOSE DECREASED
     Dosage: 2 DF, DAILY

REACTIONS (13)
  - DYSPNOEA [None]
  - HEAD INJURY [None]
  - UROSEPSIS [None]
  - HYPOPHAGIA [None]
  - METASTASES TO KIDNEY [None]
  - FALL [None]
  - BLOOD PRESSURE DECREASED [None]
  - METASTATIC UTERINE CANCER [None]
  - METASTASES TO LUNG [None]
  - CARDIO-RESPIRATORY ARREST [None]
  - BLOOD GLUCOSE FLUCTUATION [None]
  - DIABETES MELLITUS [None]
  - HYPERTENSION [None]
